FAERS Safety Report 17549256 (Version 1)
Quarter: 2020Q1

REPORT INFORMATION
  Report Type: Spontaneous
  Country: US (occurrence: US)
  Receive Date: 20200306
  Receipt Date: 20200306
  Transmission Date: 20200409
  Serious: Yes (Hospitalization)
  Sender: FDA-Public Use
  Company Number: None

PATIENT
  Age: 58 Year
  Sex: Male
  Weight: 155 kg

DRUGS (1)
  1. WARFARIN (WARFARIN NA (EXELAN) 5MG TAB [Suspect]
     Active Substance: WARFARIN
     Indication: PULMONARY EMBOLISM
     Dates: start: 20190516

REACTIONS (7)
  - Haemorrhoids [None]
  - Upper gastrointestinal haemorrhage [None]
  - International normalised ratio increased [None]
  - Large intestine polyp [None]
  - Lower gastrointestinal haemorrhage [None]
  - Diverticulitis [None]
  - Gastritis [None]

NARRATIVE: CASE EVENT DATE: 20200126
